FAERS Safety Report 10809789 (Version 1)
Quarter: 2015Q1

REPORT INFORMATION
  Report Type: Spontaneous
  Country: US (occurrence: None)
  Receive Date: 20150213
  Receipt Date: 20150213
  Transmission Date: 20150721
  Serious: No
  Sender: FDA-Public Use
  Company Number: None

PATIENT
  Age: 57 Year
  Sex: Female

DRUGS (12)
  1. VENLAFAXINE [Concomitant]
     Active Substance: VENLAFAXINE HYDROCHLORIDE
  2. TOPIRAMATE. [Concomitant]
     Active Substance: TOPIRAMATE
  3. ABILIFY [Concomitant]
     Active Substance: ARIPIPRAZOLE
  4. CALTRATE VIT. D3600 X CALCIUM [Concomitant]
  5. VITAMIN B12 [Concomitant]
     Active Substance: CYANOCOBALAMIN
  6. CLONAZEPAM. [Concomitant]
     Active Substance: CLONAZEPAM
  7. MYRBETRIQ [Suspect]
     Active Substance: MIRABEGRON
     Indication: HYPERTONIC BLADDER
     Route: 048
     Dates: start: 20150105, end: 20150116
  8. SYNTHROID [Concomitant]
     Active Substance: LEVOTHYROXINE SODIUM
  9. PANTOPRAZOLE [Concomitant]
     Active Substance: PANTOPRAZOLE SODIUM
  10. GLUCOSAMINE HCL [Suspect]
     Active Substance: GLUCOSAMINE
  11. MONTELUKAST [Concomitant]
     Active Substance: MONTELUKAST SODIUM
  12. VITAMINS [Concomitant]
     Active Substance: VITAMINS

REACTIONS (2)
  - Rash papular [None]
  - Rash [None]

NARRATIVE: CASE EVENT DATE: 20150105
